FAERS Safety Report 6496284-9 (Version None)
Quarter: 2009Q4

REPORT INFORMATION
  Report Type: 
  Country: None (occurrence: None)
  Receive Date: 20091210
  Receipt Date: 20091124
  Transmission Date: 20100525
  Serious: Yes (Hospitalization, Other)
  Sender: FDA-Public Use
  Company Number: PAR_03263_2009

PATIENT
  Age: 45 Year
  Sex: Female

DRUGS (1)
  1. RISPERIDONE [Suspect]
     Indication: DRUG USE FOR UNKNOWN INDICATION
     Dosage: (DF)

REACTIONS (11)
  - APHASIA [None]
  - ASTHENIA [None]
  - BODY TEMPERATURE INCREASED [None]
  - CONFUSIONAL STATE [None]
  - FAECAL INCONTINENCE [None]
  - NEGATIVISM [None]
  - NEUROLEPTIC MALIGNANT SYNDROME [None]
  - PANCREATITIS ACUTE [None]
  - PHAGOPHOBIA [None]
  - RHABDOMYOLYSIS [None]
  - URINARY INCONTINENCE [None]
